FAERS Safety Report 5214459-3 (Version None)
Quarter: 2007Q1

REPORT INFORMATION
  Report Type: 
  Country: None (occurrence: None)
  Receive Date: 20070116
  Receipt Date: 20061220
  Transmission Date: 20070707
  Serious: Yes (Life-Threatening, Hospitalization)
  Sender: FDA-Public Use
  Company Number: 233566

PATIENT
  Age: 82 Year
  Sex: Male

DRUGS (3)
  1. LUCENTIS (RANIBIZUMAB)  PWDER + SOLVENT, INJECTION SOLN [Suspect]
     Indication: MACULAR DEGENERATION
     Dosage: INTRAVITREAL
     Dates: start: 20060803
  2. PROSCAR [Concomitant]
  3. FLOMAX [Concomitant]

REACTIONS (3)
  - ANAPHYLACTIC REACTION [None]
  - LOSS OF CONSCIOUSNESS [None]
  - SYNCOPE VASOVAGAL [None]
